FAERS Safety Report 8903696 (Version 2)
Quarter: 2012Q4

REPORT INFORMATION
  Report Type: 
  Country: US (occurrence: US)
  Receive Date: 20121112
  Receipt Date: 20121231
  Transmission Date: 20130627
  Serious: Yes (Other)
  Sender: FDA-Public Use
  Company Number: CHPA2012US015304

PATIENT
  Age: 80 Year
  Sex: Female

DRUGS (2)
  1. BENEFIBER UNKNOWN [Suspect]
     Dosage: Unk, Unk
     Route: 048
  2. GAS-X CHEWABLE TABLETS CHERRY CREME [Suspect]
     Indication: FLATULENCE
     Dosage: Unk, PRN
     Route: 048

REACTIONS (1)
  - Neoplasm malignant [Not Recovered/Not Resolved]
